FAERS Safety Report 25022932 (Version 1)
Quarter: 2025Q1

REPORT INFORMATION
  Report Type: Spontaneous
  Country: US (occurrence: None)
  Receive Date: 20250227
  Receipt Date: 20250227
  Transmission Date: 20250409
  Serious: Yes (Death)
  Sender: FDA-CTU
  Company Number: None

PATIENT
  Age: 53 Year
  Sex: Female

DRUGS (3)
  1. ONUREG [Suspect]
     Active Substance: AZACITIDINE
     Indication: Angioimmunoblastic T-cell lymphoma
     Dosage: FREQUENCY : DAILY;?
     Route: 048
     Dates: start: 202412
  2. ONUREG [Suspect]
     Active Substance: AZACITIDINE
     Indication: Idiopathic urticaria
  3. COPIKTRA [Concomitant]
     Active Substance: DUVELISIB

REACTIONS (1)
  - Death [None]

NARRATIVE: CASE EVENT DATE: 20250218
